FAERS Safety Report 6016697-9 (Version None)
Quarter: 2008Q4

REPORT INFORMATION
  Report Type: 
  Country: None (occurrence: None)
  Receive Date: 20081222
  Receipt Date: 20081216
  Transmission Date: 20090506
  Serious: Yes (Hospitalization)
  Sender: FDA-Public Use
  Company Number: FR-ASTRAZENECA-2008CG01115

PATIENT
  Age: 62 Year
  Sex: Female

DRUGS (2)
  1. OMEPRAZOLE [Suspect]
     Indication: HIATUS HERNIA
     Route: 048
  2. ESOMEPRAZOLE MAGNESIUM [Suspect]
     Indication: HIATUS HERNIA
     Route: 048

REACTIONS (3)
  - HYPOCALCAEMIA [None]
  - HYPOMAGNESAEMIA [None]
  - HYPOPARATHYROIDISM [None]
